FAERS Safety Report 5573528-9 (Version None)
Quarter: 2007Q4

REPORT INFORMATION
  Report Type: 
  Country: None (occurrence: None)
  Receive Date: 20071226
  Receipt Date: 20071218
  Transmission Date: 20080405
  Serious: Yes (Hospitalization)
  Sender: FDA-Public Use
  Company Number: FR-AVENTIS-200714076FR

PATIENT
  Age: 80 Year
  Sex: Male

DRUGS (7)
  1. LASIX [Suspect]
     Indication: HYPERTENSION
     Route: 048
     Dates: start: 20071007, end: 20071001
  2. TRILEPTAL [Suspect]
     Indication: EPILEPSY
     Route: 048
  3. ACUITEL                            /00810601/ [Suspect]
     Indication: HYPERTENSION
     Route: 048
  4. TENORMIN [Suspect]
     Indication: HYPERTENSION
     Route: 048
  5. DEPRENYL                           /00500001/ [Suspect]
     Indication: EPILEPSY
     Route: 048
     Dates: end: 20071011
  6. AUGMENTIN '125' [Concomitant]
     Indication: LUNG DISORDER
     Dates: start: 20071007, end: 20071001
  7. ASPEGIC 1000 [Concomitant]

REACTIONS (5)
  - BRADYCARDIA [None]
  - BUNDLE BRANCH BLOCK RIGHT [None]
  - HYPOTENSION [None]
  - INFLAMMATION [None]
  - LUNG DISORDER [None]
